FAERS Safety Report 6258534-3 (Version None)
Quarter: 2009Q3

REPORT INFORMATION
  Report Type: 
  Country: None (occurrence: None)
  Receive Date: 20090707
  Receipt Date: 20090625
  Transmission Date: 20100115
  Serious: Yes (Hospitalization, Other)
  Sender: FDA-Public Use
  Company Number: US-PFIZER INC-2009232294

PATIENT
  Age: 59 Year
  Sex: Female

DRUGS (4)
  1. PREDNISONE [Suspect]
     Indication: LIVER TRANSPLANT
     Dosage: 20 MG, UNK
     Route: 048
     Dates: start: 20070101
  2. METHYLPREDNISOLONE AND METHYLPREDNISOLONE ACETATE AND METHYLPREDNISOLO [Suspect]
     Indication: LIVER TRANSPLANT
     Dosage: 1 G, UNK
     Route: 042
     Dates: start: 20070101
  3. TACROLIMUS [Suspect]
     Indication: LIVER TRANSPLANT
     Dosage: UNK
     Route: 065
     Dates: start: 20070101
  4. ALEMTUZUMAB [Suspect]
     Indication: LIVER TRANSPLANT
     Dosage: 300 MG, UNK
     Route: 042
     Dates: start: 20070101

REACTIONS (17)
  - CLOSTRIDIAL INFECTION [None]
  - CONSTIPATION [None]
  - CONVULSION [None]
  - DUODENITIS [None]
  - ENTEROBACTER BACTERAEMIA [None]
  - ENTEROCOCCAL BACTERAEMIA [None]
  - FUNGAEMIA [None]
  - HEADACHE [None]
  - LETHARGY [None]
  - LEUKOPENIA [None]
  - LIVER TRANSPLANT REJECTION [None]
  - LUNG INFILTRATION [None]
  - NECK PAIN [None]
  - PNEUMONIA STAPHYLOCOCCAL [None]
  - RESPIRATORY DISTRESS [None]
  - STRONGYLOIDIASIS [None]
  - WEIGHT DECREASED [None]
